FAERS Safety Report 7606474-7 (Version None)
Quarter: 2011Q3

REPORT INFORMATION
  Report Type: 
  Country: None (occurrence: None)
  Receive Date: 20110713
  Receipt Date: 20110706
  Transmission Date: 20111222
  Serious: Yes (Hospitalization, Other)
  Sender: FDA-Public Use
  Company Number: GB-GENZYME-CAMP-1000298

PATIENT
  Sex: Male
  Weight: 80 kg

DRUGS (32)
  1. CHLORPHENIRAMINE MALEATE [Concomitant]
     Indication: PREMEDICATION
     Dosage: 4 MG, ONCE
     Route: 048
     Dates: start: 20090615, end: 20090615
  2. SEPTRA [Concomitant]
     Dosage: UNK UNK, TIW
     Route: 048
     Dates: start: 20090618, end: 20090711
  3. CO AMILOFUSE [Concomitant]
     Indication: FLUID RETENTION
     Dosage: UNK UNK, UNK
     Route: 048
     Dates: start: 20090622, end: 20090626
  4. CIPROFLOXACILIN [Concomitant]
     Indication: PRODUCT USED FOR UNKNOWN INDICATION
     Dosage: 500 MG, UNK
     Dates: start: 20090725, end: 20090728
  5. BENDROFLUMETHIAZIDE [Concomitant]
     Dosage: 2.5 MG, UNK
     Route: 048
     Dates: start: 20090703, end: 20090726
  6. SANDO K [Concomitant]
     Indication: BLOOD POTASSIUM DECREASED
     Dosage: 2 OTHER, UNK
     Route: 048
     Dates: start: 20090623, end: 20090627
  7. AMOXICILLIN [Concomitant]
     Indication: PRODUCT USED FOR UNKNOWN INDICATION
     Dosage: 500 MG, UNK
     Dates: start: 20090725, end: 20090728
  8. ACYCLOVIR [Concomitant]
     Indication: PROPHYLAXIS
     Dosage: 800 MG, QDX5
     Route: 048
     Dates: start: 20090616, end: 20090728
  9. CALCIUM RESONIUM [Concomitant]
     Indication: BLOOD POTASSIUM INCREASED
     Dosage: UNK
     Dates: start: 20090704, end: 20090707
  10. PENTAMIDINE ISETHIONATE [Concomitant]
     Indication: INFECTION
     Dosage: 300 MG, UNK
     Dates: start: 20090719, end: 20090728
  11. ACETAMINOPHEN [Concomitant]
     Dosage: 1 G, ONCE
     Route: 048
     Dates: start: 20090619, end: 20090619
  12. CHLORPHENIRAMINE MALEATE [Concomitant]
     Dosage: 4 MG, ONCE
     Route: 048
     Dates: start: 20090619, end: 20090619
  13. HYDROCORTISONE [Concomitant]
     Indication: PREMEDICATION
     Dosage: 100 MG, ONCE
     Route: 042
     Dates: start: 20090619, end: 20090619
  14. ALBUTEROL [Concomitant]
     Dosage: UNK UNK, UNK
     Route: 065
     Dates: start: 20090704, end: 20090707
  15. ALLOPURINOL [Concomitant]
     Indication: PROPHYLAXIS
     Dosage: 100 MG, UNK
     Route: 048
     Dates: start: 20090615, end: 20090727
  16. ALBUTEROL [Concomitant]
     Dosage: 2.5 - 5 UNK, PRN
     Route: 065
     Dates: start: 20090708
  17. DEXAMETHASONE [Concomitant]
     Indication: PRODUCT USED FOR UNKNOWN INDICATION
     Dosage: 20 MG, UNK
     Dates: start: 20090719, end: 20090728
  18. ADALAT [Concomitant]
     Indication: HYPOCALCAEMIA
     Dosage: 30 MG, UNK
     Route: 048
     Dates: start: 20090615, end: 20090703
  19. ITRACONAZOLE [Concomitant]
     Indication: PROPHYLAXIS
     Dosage: 200 MG, UNK
     Route: 048
     Dates: start: 20090616, end: 20090728
  20. CODEINE LINCTUS [Concomitant]
     Indication: COUGH
     Dosage: 30 MG, QDX5
     Dates: start: 20090628, end: 20090724
  21. CAMPATH [Suspect]
     Indication: CHRONIC LYMPHOCYTIC LEUKAEMIA
     Dosage: 30 MG, QOD
     Route: 058
     Dates: start: 20090615, end: 20090619
  22. ACETAMINOPHEN [Concomitant]
     Dosage: 1 G, ONCE
     Route: 048
     Dates: start: 20090617, end: 20090617
  23. ACETAMINOPHEN [Concomitant]
     Dosage: 1 G, ONCE
     Route: 048
     Dates: start: 20090705, end: 20090705
  24. CHLORPHENIRAMINE MALEATE [Concomitant]
     Dosage: 4 MG, ONCE
     Route: 048
     Dates: start: 20090617, end: 20090617
  25. SEPTRA [Concomitant]
     Indication: PROPHYLAXIS
     Dosage: 480 MG, UNK
     Route: 048
     Dates: start: 20090617
  26. CO-TRIMOX [Concomitant]
     Indication: INFECTION
     Dosage: 480 MG, TIW
     Route: 048
     Dates: start: 20090712, end: 20090728
  27. OMEPRAZOLE [Concomitant]
     Indication: GASTROOESOPHAGEAL REFLUX DISEASE
     Dosage: 40 MG, UNK
     Route: 048
     Dates: start: 20090623, end: 20090728
  28. ACETAMINOPHEN [Concomitant]
     Indication: PREMEDICATION
     Dosage: 1 G, ONCE
     Route: 048
     Dates: start: 20090615, end: 20090615
  29. BENDROFLUMETHIAZIDE [Concomitant]
     Indication: HYPERTENSION
     Dosage: 2.5 MG, UNK
     Route: 048
     Dates: start: 20090617, end: 20090628
  30. ITRACONAZOLE [Concomitant]
     Dosage: 400 MG, UNK
     Dates: start: 20090616
  31. ALBUTEROL [Concomitant]
     Indication: LOWER RESPIRATORY TRACT INFECTION
     Dosage: 5 UNK, PRN
     Route: 065
     Dates: start: 20090630, end: 20090703
  32. LANSOPRAZOLE [Concomitant]
     Indication: PRODUCT USED FOR UNKNOWN INDICATION
     Dosage: UNK
     Dates: start: 20090719, end: 20090725

REACTIONS (5)
  - OEDEMA GENITAL [None]
  - OEDEMA PERIPHERAL [None]
  - PARAINFLUENZAE VIRUS INFECTION [None]
  - CELLULITIS [None]
  - LOCALISED OEDEMA [None]
